FAERS Safety Report 21591668 (Version 2)
Quarter: 2022Q4

REPORT INFORMATION
  Report Type: Spontaneous
  Country: US (occurrence: US)
  Receive Date: 20221114
  Receipt Date: 20221206
  Transmission Date: 20230112
  Serious: No
  Sender: FDA-Public Use
  Company Number: US-LUPIN PHARMACEUTICALS INC.-2022-13302

PATIENT

DRUGS (1)
  1. ALBUTEROL SULFATE [Suspect]
     Active Substance: ALBUTEROL SULFATE
     Indication: Wheezing
     Dosage: UNK, 2 PUFFS EVERY FOUR HOURS
     Dates: start: 20221031

REACTIONS (5)
  - Hypersensitivity [Unknown]
  - Rash erythematous [Unknown]
  - Chest discomfort [Unknown]
  - Wheezing [Unknown]
  - Product substitution issue [Unknown]

NARRATIVE: CASE EVENT DATE: 20221031
